FAERS Safety Report 16185530 (Version 1)
Quarter: 2019Q2

REPORT INFORMATION
  Report Type: Spontaneous
  Country: US (occurrence: US)
  Receive Date: 20190308
  Receipt Date: 20190308
  Transmission Date: 20190711
  Serious: Yes (Life-Threatening, Hospitalization, Disabling)
  Sender: FDA-Public Use
  Company Number: None

PATIENT
  Age: 63 Year
  Sex: Male
  Weight: 75.7 kg

DRUGS (1)
  1. LISINOPRIL. [Suspect]
     Active Substance: LISINOPRIL
     Indication: HYPERTENSION
     Route: 048
     Dates: start: 20110520, end: 20190218

REACTIONS (5)
  - Swollen tongue [None]
  - Tracheostomy [None]
  - Endotracheal intubation complication [None]
  - Pharyngeal swelling [None]
  - Transfusion [None]

NARRATIVE: CASE EVENT DATE: 20190218
